FAERS Safety Report 25252895 (Version 1)
Quarter: 2025Q2

REPORT INFORMATION
  Report Type: Spontaneous
  Country: US (occurrence: US)
  Receive Date: 20250429
  Receipt Date: 20250429
  Transmission Date: 20250717
  Serious: No
  Sender: BRISTOL-MYERS SQUIBB COMPANY
  Company Number: US-BRISTOL-MYERS SQUIBB COMPANY-2025-059815

PATIENT
  Age: 55 Year
  Sex: Female

DRUGS (3)
  1. ZEPOSIA [Suspect]
     Active Substance: OZANIMOD HYDROCHLORIDE
     Indication: Multiple sclerosis
     Route: 048
     Dates: start: 202206
  2. ZEPOSIA [Suspect]
     Active Substance: OZANIMOD HYDROCHLORIDE
     Dates: start: 202207
  3. VUEWAY [Suspect]
     Active Substance: GADOPICLENOL
     Indication: Product used for unknown indication

REACTIONS (2)
  - Rash pruritic [Unknown]
  - Pruritus [Unknown]
